FAERS Safety Report 4642815-0 (Version None)
Quarter: 2005Q2

REPORT INFORMATION
  Report Type: 
  Country: None (occurrence: None)
  Receive Date: 20050421
  Receipt Date: 20050412
  Transmission Date: 20051028
  Serious: Yes (Death, Hospitalization, Other)
  Sender: FDA-Public Use
  Company Number: 2005-04-0402

PATIENT
  Age: 58 Year
  Sex: Male
  Weight: 126 kg

DRUGS (8)
  1. PEG-INTRON [Suspect]
     Indication: HEPATITIS C
     Dosage: SEE IMAGE
     Route: 058
     Dates: start: 20041203, end: 20050215
  2. PEG-INTRON [Suspect]
     Indication: HEPATITIS C
     Dosage: SEE IMAGE
     Route: 058
     Dates: start: 20041203, end: 20050407
  3. PEG-INTRON [Suspect]
     Indication: HEPATITIS C
     Dosage: SEE IMAGE
     Route: 058
     Dates: start: 20050215, end: 20050407
  4. RIBAVIRIN [Suspect]
     Indication: HEPATITIS C
     Dosage: 1200 MG ORAL
     Route: 048
     Dates: start: 20041203, end: 20050407
  5. LASIX [Concomitant]
  6. ALDACTONE [Concomitant]
  7. POTASSIUM SUPPLEMENT (NOS) [Concomitant]
  8. MILK THISTLE FRUIT [Concomitant]

REACTIONS (4)
  - ASCITES [None]
  - DYSPNOEA [None]
  - PANCYTOPENIA [None]
  - WEIGHT INCREASED [None]
